FAERS Safety Report 7323316-8 (Version None)
Quarter: 2011Q1

REPORT INFORMATION
  Report Type: 
  Country: None (occurrence: None)
  Receive Date: 20110301
  Receipt Date: 20110223
  Transmission Date: 20110831
  Serious: Yes (Hospitalization, Other)
  Sender: FDA-Public Use
  Company Number: ES-PFIZER INC-2011038974

PATIENT
  Age: 61 Year
  Sex: Male

DRUGS (2)
  1. MINODIAB [Suspect]
     Indication: TYPE 2 DIABETES MELLITUS
     Dosage: 5 MG, UNK
     Route: 048
     Dates: start: 20090101, end: 20090516
  2. METFORMIN HCL [Interacting]
     Indication: TYPE 2 DIABETES MELLITUS
     Dosage: 850 MG, UNK
     Route: 048
     Dates: start: 20090101, end: 20090516

REACTIONS (5)
  - METABOLIC ACIDOSIS [None]
  - DIABETIC KETOACIDOSIS [None]
  - GASTROENTERITIS [None]
  - DRUG INTERACTION [None]
  - RENAL FAILURE ACUTE [None]
